FAERS Safety Report 16485326 (Version 2)
Quarter: 2019Q3

REPORT INFORMATION
  Report Type: Not Available
  Country: US (occurrence: US)
  Receive Date: 20190627
  Receipt Date: 20190703
  Transmission Date: 20191004
  Serious: Yes (Death)
  Sender: FDA-Public Use
  Company Number: US-NEUROCRINE BIOSCIENCES INC.-2019NBI01703

PATIENT
  Age: 72 Year
  Sex: Female

DRUGS (14)
  1. NUEDEXTA [Concomitant]
     Active Substance: DEXTROMETHORPHAN HYDROBROMIDE\QUINIDINE SULFATE
  2. TRAMADOL. [Concomitant]
     Active Substance: TRAMADOL
  3. MORPHINE [Concomitant]
     Active Substance: MORPHINE
  4. INGREZZA [Suspect]
     Active Substance: VALBENAZINE
     Indication: TARDIVE DYSKINESIA
     Route: 048
     Dates: start: 20190122
  5. TYLENOL [Concomitant]
     Active Substance: ACETAMINOPHEN
  6. DEPAKOTE [Concomitant]
     Active Substance: DIVALPROEX SODIUM
  7. GABAPENTIN. [Concomitant]
     Active Substance: GABAPENTIN
  8. NAMENDA [Concomitant]
     Active Substance: MEMANTINE HYDROCHLORIDE
  9. DULCOLAX NOS [Concomitant]
     Active Substance: BISACODYL OR DOCUSATE SODIUM
  10. RISPERDAL [Concomitant]
     Active Substance: RISPERIDONE
  11. PROTONIX [Concomitant]
     Active Substance: PANTOPRAZOLE SODIUM
  12. SENNA [Concomitant]
     Active Substance: SENNA LEAF\SENNOSIDES\SENNOSIDES A AND B
  13. ATIVAN [Concomitant]
     Active Substance: LORAZEPAM
  14. ATROPINE. [Concomitant]
     Active Substance: ATROPINE

REACTIONS (1)
  - Chronic obstructive pulmonary disease [Fatal]

NARRATIVE: CASE EVENT DATE: 20190508
